FAERS Safety Report 5938427-9 (Version None)
Quarter: 2008Q4

REPORT INFORMATION
  Report Type: 
  Country: None (occurrence: None)
  Receive Date: 20081103
  Receipt Date: 20081029
  Transmission Date: 20090506
  Serious: Yes (Hospitalization, Other)
  Sender: FDA-Public Use
  Company Number: US-RB-004016-08

PATIENT
  Sex: Male

DRUGS (8)
  1. SUBOXONE [Suspect]
     Route: 060
     Dates: start: 20080818
  2. SUBOXONE [Suspect]
     Route: 060
  3. LISINOPRIL [Concomitant]
     Indication: DRUG USE FOR UNKNOWN INDICATION
     Route: 065
  4. MELOXICAM [Concomitant]
     Indication: DRUG USE FOR UNKNOWN INDICATION
     Route: 065
  5. SERTRALINE [Concomitant]
     Indication: DRUG USE FOR UNKNOWN INDICATION
     Route: 065
  6. AMLODIPINE [Concomitant]
     Indication: HYPERTENSION
     Route: 065
  7. AMBIEN [Concomitant]
     Indication: INSOMNIA
     Dosage: 10 MG EVERY NIGHT
     Route: 065
  8. DYAZIDE [Concomitant]
     Indication: HYPERTENSION
     Dosage: 37.5/25 MG DAILY
     Route: 065

REACTIONS (6)
  - CONTUSION [None]
  - FALL [None]
  - HALLUCINATION [None]
  - INSOMNIA [None]
  - SYNCOPE [None]
  - VISUAL IMPAIRMENT [None]
